FAERS Safety Report 18634395 (Version 1)
Quarter: 2020Q4

REPORT INFORMATION
  Report Type: Spontaneous
  Country: US (occurrence: US)
  Receive Date: 20201218
  Receipt Date: 20201218
  Transmission Date: 20210114
  Serious: No
  Sender: FDA-Public Use
  Company Number: US-PFIZER INC-2020389512

PATIENT
  Age: 12 Year
  Sex: Female
  Weight: 39.92 kg

DRUGS (2)
  1. GENOTROPIN [Suspect]
     Active Substance: SOMATROPIN
     Dosage: 1.2 MG
  2. GENOTROPIN [Suspect]
     Active Substance: SOMATROPIN
     Indication: GROWTH HORMONE DEFICIENCY
     Dosage: 1 MG, 1X/DAY(ONE SHOT A DAY AND ROTATE LOCATIONS ON HER BODY)(1.0MG/DAY, 7DAYS/WK)
     Dates: start: 202007

REACTIONS (2)
  - Product dose omission issue [Unknown]
  - Device breakage [Unknown]
